FAERS Safety Report 5233178-0 (Version None)
Quarter: 2007Q1

REPORT INFORMATION
  Report Type: 
  Country: None (occurrence: None)
  Receive Date: 20070207
  Receipt Date: 20070130
  Transmission Date: 20070707
  Serious: Yes (Other)
  Sender: FDA-Public Use
  Company Number: US-PFIZER INC-2007007966

PATIENT
  Sex: Female
  Weight: 80.7 kg

DRUGS (5)
  1. DOSTINEX [Suspect]
     Indication: PITUITARY TUMOUR
     Dates: start: 20050101, end: 20061201
  2. DOSTINEX [Suspect]
     Indication: HYPERPROLACTINAEMIA
  3. CABERGOLINE [Suspect]
     Indication: PITUITARY TUMOUR
     Dates: start: 20061201, end: 20070126
  4. CABERGOLINE [Suspect]
     Indication: HYPERPROLACTINAEMIA
  5. IRON [Concomitant]

REACTIONS (8)
  - ANAEMIA [None]
  - CHEST PAIN [None]
  - DIZZINESS [None]
  - HEADACHE [None]
  - MALAISE [None]
  - NAUSEA [None]
  - PALPITATIONS [None]
  - VOMITING [None]
